FAERS Safety Report 4511809-8 (Version None)
Quarter: 2004Q4

REPORT INFORMATION
  Report Type: 
  Country: None (occurrence: None)
  Receive Date: 20041123
  Receipt Date: 20041112
  Transmission Date: 20050328
  Serious: Yes (Other)
  Sender: FDA-Public Use
  Company Number: US-2004-035036

PATIENT
  Sex: Female

DRUGS (1)
  1. MIRENA [Suspect]
     Dosage: 20  ?G/DAY, CONT, INTRA-UTERINE
     Route: 015
     Dates: start: 20041001

REACTIONS (1)
  - BREAST CANCER FEMALE [None]
